FAERS Safety Report 14893786 (Version 3)
Quarter: 2018Q3

REPORT INFORMATION
  Report Type: Report from Study
  Country: BR (occurrence: BR)
  Receive Date: 20180514
  Receipt Date: 20180828
  Transmission Date: 20181010
  Serious: Yes (Other)
  Sender: FDA-Public Use
  Company Number: BR-ROCHE-2121362

PATIENT
  Sex: Female
  Weight: 65 kg

DRUGS (5)
  1. ACTEMRA [Suspect]
     Active Substance: TOCILIZUMAB
     Indication: RHEUMATOID ARTHRITIS
     Route: 042
     Dates: start: 20171001
  2. GARDENAL [Concomitant]
     Active Substance: PHENOBARBITAL
  3. HUMIRA [Suspect]
     Active Substance: ADALIMUMAB
     Indication: PRODUCT USED FOR UNKNOWN INDICATION
     Route: 065
  4. ARAVA [Suspect]
     Active Substance: LEFLUNOMIDE
     Indication: PRODUCT USED FOR UNKNOWN INDICATION
     Route: 065
  5. DEPAKENE [Concomitant]
     Active Substance: VALPROIC ACID

REACTIONS (8)
  - Tympanic membrane perforation [Recovering/Resolving]
  - Drug interaction [Unknown]
  - Weight increased [Not Recovered/Not Resolved]
  - Seizure [Unknown]
  - Mastoiditis [Recovered/Resolved]
  - Seizure [Recovered/Resolved]
  - Swelling [Not Recovered/Not Resolved]
  - Otorrhoea [Recovered/Resolved]
